FAERS Safety Report 24336021 (Version 1)
Quarter: 2024Q3

REPORT INFORMATION
  Report Type: Spontaneous
  Country: JP (occurrence: JP)
  Receive Date: 20240919
  Receipt Date: 20240919
  Transmission Date: 20241017
  Serious: No
  Sender: ROCHE
  Company Number: JP-CHUGAI-2023046665

PATIENT
  Age: 5 Decade
  Sex: Female

DRUGS (2)
  1. TAMIFLU [Suspect]
     Active Substance: OSELTAMIVIR PHOSPHATE
     Indication: Antiviral prophylaxis
     Dosage: 75 MILLIGRAM
     Route: 065
     Dates: start: 20231227, end: 20231227
  2. TAMIFLU [Suspect]
     Active Substance: OSELTAMIVIR PHOSPHATE
     Indication: Influenza
     Dosage: 75 MILLIGRAM, BID?ON 01/JAN/2024, THERAPY ENDED
     Route: 065
     Dates: start: 20231228, end: 20240101

REACTIONS (1)
  - Influenza virus test positive [Recovered/Resolved]

NARRATIVE: CASE EVENT DATE: 20231228
